FAERS Safety Report 9429788 (Version 1)
Quarter: 2013Q3

REPORT INFORMATION
  Report Type: Spontaneous
  Country: US (occurrence: US)
  Receive Date: 20130730
  Receipt Date: 20130730
  Transmission Date: 20140515
  Serious: No
  Sender: FDA-Public Use
  Company Number: US-ABBOTT-13P-163-1043402-00

PATIENT
  Age: 44 Year
  Sex: Male
  Weight: 145.28 kg

DRUGS (4)
  1. NIASPAN (COATED) [Suspect]
     Indication: HIGH DENSITY LIPOPROTEIN INCREASED
     Route: 048
     Dates: start: 20130119, end: 20130124
  2. NIASPAN (COATED) [Suspect]
     Route: 048
     Dates: start: 20130125
  3. LOSARTAN [Concomitant]
     Indication: HYPERTENSION
  4. METFORMIN [Concomitant]
     Indication: DIABETES MELLITUS

REACTIONS (1)
  - Flushing [Not Recovered/Not Resolved]
